FAERS Safety Report 5393204-5 (Version None)
Quarter: 2007Q3

REPORT INFORMATION
  Report Type: 
  Country: None (occurrence: None)
  Receive Date: 20070718
  Receipt Date: 20061011
  Transmission Date: 20080115
  Serious: Yes (Hospitalization, Other)
  Sender: FDA-Public Use
  Company Number: 2006071747

PATIENT
  Age: 56 Year
  Sex: Male
  Weight: 74.8435 kg

DRUGS (1)
  1. CELEBREX [Suspect]
     Dates: start: 20010418

REACTIONS (2)
  - EMBOLISM [None]
  - MYOCARDIAL INFARCTION [None]
